FAERS Safety Report 13641881 (Version 1)
Quarter: 2017Q2

REPORT INFORMATION
  Report Type: Spontaneous
  Country: US (occurrence: US)
  Receive Date: 20170612
  Receipt Date: 20170612
  Transmission Date: 20170830
  Serious: No
  Sender: FDA-Public Use
  Company Number: US-PFIZER INC-2017253806

PATIENT
  Age: 55 Year
  Sex: Female

DRUGS (7)
  1. WELLBUTRIN [Suspect]
     Active Substance: BUPROPION HYDROCHLORIDE
  2. KEFLEX [Suspect]
     Active Substance: CEPHALEXIN
  3. LYRICA [Suspect]
     Active Substance: PREGABALIN
  4. TIOCONAZOLE. [Suspect]
     Active Substance: TIOCONAZOLE
     Route: 061
  5. ERYTHROMYCIN. [Suspect]
     Active Substance: ERYTHROMYCIN
  6. CODEINE [Suspect]
     Active Substance: CODEINE
  7. AMOXICILLIN + CLAV. POTASSIUM [Suspect]
     Active Substance: AMOXICILLIN\CLAVULANATE POTASSIUM

REACTIONS (1)
  - Drug hypersensitivity [Unknown]
